FAERS Safety Report 11858708 (Version 3)
Quarter: 2016Q1

REPORT INFORMATION
  Report Type: Spontaneous
  Country: US (occurrence: US)
  Receive Date: 20151222
  Receipt Date: 20160225
  Transmission Date: 20160526
  Serious: No
  Sender: FDA-Public Use
  Company Number: US-009507513-1512USA010782

PATIENT
  Sex: Female
  Weight: 114.74 kg

DRUGS (1)
  1. NEXPLANON [Suspect]
     Active Substance: ETONOGESTREL
     Indication: CONTRACEPTION
     Dosage: 68 MG, ONCE EVERY 3 YEARS
     Route: 059
     Dates: end: 20160104

REACTIONS (6)
  - Pyelonephritis [Unknown]
  - Device breakage [Recovered/Resolved]
  - Bacterial vaginosis [Unknown]
  - Pain [Unknown]
  - Depression [Unknown]
  - Amenorrhoea [Unknown]

NARRATIVE: CASE EVENT DATE: 2015
